FAERS Safety Report 7343008-9 (Version None)
Quarter: 2011Q1

REPORT INFORMATION
  Report Type: 
  Country: None (occurrence: None)
  Receive Date: 20110308
  Receipt Date: 20110308
  Transmission Date: 20110831
  Serious: Yes (Hospitalization)
  Sender: FDA-Public Use
  Company Number: None

PATIENT
  Age: 41 Year
  Sex: Male
  Weight: 96 kg

DRUGS (1)
  1. ARIPIPRAZOLE [Suspect]
     Indication: BIPOLAR I DISORDER
     Dosage: 2.5 MG EVERY DAY PO
     Route: 048
     Dates: start: 20101230, end: 20110214

REACTIONS (3)
  - EXTRAPYRAMIDAL DISORDER [None]
  - DYSTONIA [None]
  - POTENTIATING DRUG INTERACTION [None]
